FAERS Safety Report 14409980 (Version 2)
Quarter: 2018Q1

REPORT INFORMATION
  Report Type: Spontaneous
  Country: US (occurrence: US)
  Receive Date: 20180119
  Receipt Date: 20180208
  Transmission Date: 20180509
  Serious: No
  Sender: FDA-Public Use
  Company Number: US-PFIZER INC-2018015728

PATIENT
  Age: 72 Year
  Sex: Female

DRUGS (4)
  1. LYRICA [Suspect]
     Active Substance: PREGABALIN
     Indication: NEURALGIA
  2. LYRICA [Suspect]
     Active Substance: PREGABALIN
     Indication: OSTEOPOROSIS
  3. LYRICA [Suspect]
     Active Substance: PREGABALIN
     Indication: NECK PAIN
     Dosage: 25 MG, UNK
  4. LYRICA [Suspect]
     Active Substance: PREGABALIN
     Indication: ARTHRITIS
     Dosage: 50 MG, 1X/DAY
     Route: 048
     Dates: start: 20171128

REACTIONS (12)
  - Drug intolerance [Not Recovered/Not Resolved]
  - Pruritus [Recovering/Resolving]
  - Panic attack [Unknown]
  - Scar [Unknown]
  - Scratch [Unknown]
  - Feeling abnormal [Not Recovered/Not Resolved]
  - Phobia of driving [Unknown]
  - Dry skin [Unknown]
  - Sleep disorder [Unknown]
  - Intentional product use issue [Unknown]
  - Hyporeflexia [Not Recovered/Not Resolved]
  - Somnolence [Not Recovered/Not Resolved]

NARRATIVE: CASE EVENT DATE: 201711
